FAERS Safety Report 4701306-9 (Version None)
Quarter: 2005Q2

REPORT INFORMATION
  Report Type: 
  Country: None (occurrence: None)
  Receive Date: 20050628
  Receipt Date: 20050622
  Transmission Date: 20051028
  Serious: Yes (Other)
  Sender: FDA-Public Use
  Company Number: PHEH2005US07063

PATIENT
  Age: 75 Year
  Sex: Female

DRUGS (4)
  1. MIACALCIN [Suspect]
     Route: 045
     Dates: start: 20000101, end: 20050618
  2. CALCIUM GLUCONATE [Concomitant]
  3. ANTIHYPERTENSIVE DRUGS [Concomitant]
  4. CHOLESTEROL- AND TRIGLYCERIDE REDUCERS [Concomitant]

REACTIONS (3)
  - BODY HEIGHT DECREASED [None]
  - PAROSMIA [None]
  - SPINAL FRACTURE [None]
